FAERS Safety Report 16412432 (Version 1)
Quarter: 2019Q2

REPORT INFORMATION
  Report Type: Spontaneous
  Country: BR (occurrence: BR)
  Receive Date: 20190610
  Receipt Date: 20190610
  Transmission Date: 20190711
  Serious: No
  Sender: FDA-Public Use
  Company Number: BR-PROMETHEUS LABORATORIES-2018PL000037

PATIENT

DRUGS (1)
  1. PROLEUKIN [Suspect]
     Active Substance: ALDESLEUKIN
     Indication: SYSTEMIC LUPUS ERYTHEMATOSUS
     Dosage: UNK UNKNOWN
     Route: 065

REACTIONS (1)
  - Drug ineffective [Unknown]
